FAERS Safety Report 17815682 (Version 2)
Quarter: 2020Q2

REPORT INFORMATION
  Report Type: Spontaneous
  Country: BR (occurrence: BR)
  Receive Date: 20200522
  Receipt Date: 20200616
  Transmission Date: 20200714
  Serious: Yes (Hospitalization)
  Sender: FDA-Public Use
  Company Number: BR-PFIZER INC-2020199671

PATIENT
  Age: 73 Year
  Sex: Male

DRUGS (7)
  1. SILDENAFIL CITRATE. [Suspect]
     Active Substance: SILDENAFIL CITRATE
     Indication: DIABETES MELLITUS MANAGEMENT
     Dosage: 25 MG 3 TIMES
     Dates: start: 201802
  2. LOSARTAN AND HYDROCHLOROTHIAZIDE [Concomitant]
     Active Substance: HYDROCHLOROTHIAZIDE\LOSARTAN POTASSIUM
     Indication: HYPERTENSION
     Dosage: UNK, 2X/DAY (MORNING AND AFTERNOON)
  3. ROSUVASTATIN. [Concomitant]
     Active Substance: ROSUVASTATIN
     Indication: DYSLIPIDAEMIA
     Dosage: UNK
  4. SILDENAFIL CITRATE. [Suspect]
     Active Substance: SILDENAFIL CITRATE
     Indication: ANGIOPATHY
  5. FORMOTEROL FUMARATE DIHYDRATE [Concomitant]
     Active Substance: FORMOTEROL FUMARATE DIHYDRATE
     Indication: ASTHMA
     Dosage: UNK UNK, DAILY
  6. BISOPROLOL HEMIFUMARATE [Concomitant]
     Active Substance: BISOPROLOL FUMARATE
     Indication: ASTHMA
     Dosage: UNK, DAILY
  7. AAS [Concomitant]
     Active Substance: ASPIRIN
     Dosage: UNK

REACTIONS (7)
  - Off label use [Unknown]
  - Loss of consciousness [Recovering/Resolving]
  - Drug effective for unapproved indication [Unknown]
  - Hypoglycaemia [Recovering/Resolving]
  - Dysarthria [Recovering/Resolving]
  - Confusional state [Recovering/Resolving]
  - Product use in unapproved indication [Unknown]

NARRATIVE: CASE EVENT DATE: 201802
